FAERS Safety Report 24442859 (Version 1)
Quarter: 2024Q4

REPORT INFORMATION
  Report Type: Spontaneous
  Country: US (occurrence: US)
  Receive Date: 20241016
  Receipt Date: 20241016
  Transmission Date: 20250114
  Serious: No
  Sender: SANDOZ
  Company Number: US-002147023-NVSC2023US246762

PATIENT
  Sex: Female
  Weight: 50.794 kg

DRUGS (1)
  1. COMBIPATCH [Suspect]
     Active Substance: ESTRADIOL\NORETHINDRONE ACETATE
     Indication: Osteoporosis
     Dosage: 0.05/0.14 MG BIW, SUNDAY AND THURSDAY
     Route: 062
     Dates: start: 20231022

REACTIONS (5)
  - Nipple pain [Not Recovered/Not Resolved]
  - Breast pain [Not Recovered/Not Resolved]
  - Product temperature excursion issue [Recovered/Resolved]
  - Off label use [Not Recovered/Not Resolved]
  - Product adhesion issue [Unknown]

NARRATIVE: CASE EVENT DATE: 20231022
